FAERS Safety Report 12736039 (Version 1)
Quarter: 2016Q3

REPORT INFORMATION
  Report Type: Spontaneous
  Country: IL (occurrence: IL)
  Receive Date: 20160912
  Receipt Date: 20160912
  Transmission Date: 20161109
  Serious: Yes (Other)
  Sender: FDA-Public Use
  Company Number: IL-PFIZER INC-2016364473

PATIENT
  Age: 58 Year
  Sex: Male

DRUGS (6)
  1. DOXORUBICIN HCL [Suspect]
     Active Substance: DOXORUBICIN HYDROCHLORIDE
     Indication: DIFFUSE LARGE B-CELL LYMPHOMA STAGE IV
     Dosage: 6 CYCLES
  2. PREDNISONE. [Suspect]
     Active Substance: PREDNISONE
     Indication: DIFFUSE LARGE B-CELL LYMPHOMA STAGE IV
     Dosage: 6 CYCLES
  3. CYCLOPHOSPHAMIDE. [Suspect]
     Active Substance: CYCLOPHOSPHAMIDE
     Indication: DIFFUSE LARGE B-CELL LYMPHOMA STAGE IV
     Dosage: 6 CYCLES
  4. ONCOVIN [Suspect]
     Active Substance: VINCRISTINE SULFATE
     Indication: DIFFUSE LARGE B-CELL LYMPHOMA STAGE IV
     Dosage: 6 CYCLES
  5. RITUXIMAB [Suspect]
     Active Substance: RITUXIMAB
     Indication: DIFFUSE LARGE B-CELL LYMPHOMA STAGE IV
     Dosage: 6 CYCLES
  6. RITUXIMAB [Suspect]
     Active Substance: RITUXIMAB
     Dosage: EVERY 3 MONTHS

REACTIONS (2)
  - Respiratory tract infection [Recovered/Resolved]
  - Hypogammaglobulinaemia [Not Recovered/Not Resolved]
